FAERS Safety Report 23852046 (Version 1)
Quarter: 2024Q2

REPORT INFORMATION
  Report Type: Other
  Country: FR (occurrence: FR)
  Receive Date: 20240514
  Receipt Date: 20240514
  Transmission Date: 20240716
  Serious: Yes (Hospitalization, Other)
  Sender: FDA-Public Use
  Company Number: FR-IBSA PHARMA INC.-2024IBS000212

PATIENT
  Age: 83 Year
  Sex: Female

DRUGS (32)
  1. LEVOTHYROXINE SODIUM [Suspect]
     Active Substance: LEVOTHYROXINE SODIUM
     Indication: Hypothyroidism
     Dosage: 75 MICROGRAM, QD
     Route: 048
  2. VIDAZA [Suspect]
     Active Substance: AZACITIDINE
     Indication: Acute leukaemia
     Dosage: UNK (2ND COURSE)
     Route: 065
     Dates: start: 20200923, end: 20200929
  3. VIDAZA [Suspect]
     Active Substance: AZACITIDINE
     Dosage: UNK (3RD COURSE)
     Route: 065
     Dates: start: 20201021, end: 20201027
  4. VIDAZA [Suspect]
     Active Substance: AZACITIDINE
     Dosage: UNK (4TH COURSE)
     Route: 065
     Dates: start: 20201118, end: 20201124
  5. VIDAZA [Suspect]
     Active Substance: AZACITIDINE
     Dosage: UNK (5TH COURSE)
     Route: 065
     Dates: start: 20201216, end: 20201223
  6. VIDAZA [Suspect]
     Active Substance: AZACITIDINE
     Dosage: UNK (6TH COURSE)
     Route: 065
     Dates: start: 20210113, end: 20210119
  7. VIDAZA [Suspect]
     Active Substance: AZACITIDINE
     Dosage: UNK (7TH COURSE)
     Route: 058
     Dates: start: 20210210, end: 20210216
  8. VIDAZA [Suspect]
     Active Substance: AZACITIDINE
     Dosage: UNK (8TH COURSE)
     Route: 065
     Dates: start: 20210310, end: 20210316
  9. VIDAZA [Suspect]
     Active Substance: AZACITIDINE
     Dosage: UNK (9TH COURSE)
     Route: 065
     Dates: start: 20210408, end: 20210413
  10. VIDAZA [Suspect]
     Active Substance: AZACITIDINE
     Dosage: UNK (10TH COURSE)
     Route: 065
     Dates: start: 20210505, end: 20210511
  11. VIDAZA [Suspect]
     Active Substance: AZACITIDINE
     Dosage: 130 MILLIGRAM DAILY (75 MG/M2/DAY)
     Route: 058
     Dates: start: 20200825, end: 20200831
  12. VIDAZA [Suspect]
     Active Substance: AZACITIDINE
     Dosage: UNK
     Route: 058
     Dates: start: 20200825, end: 20210511
  13. PLAVIX [Suspect]
     Active Substance: CLOPIDOGREL BISULFATE
     Indication: Myocardial infarction
     Dosage: 75 MILLIGRAM DAILY
     Route: 048
  14. ROSUVASTATIN [Suspect]
     Active Substance: ROSUVASTATIN
     Indication: Hypercholesterolaemia
     Dosage: 10 MILLIGRAM, QD
     Route: 048
  15. CANDESARTAN CILEXETIL [Suspect]
     Active Substance: CANDESARTAN CILEXETIL
     Indication: Hypertension
     Dosage: 2 MILLIGRAM, QD
     Route: 048
  16. ONDANSETRON [Suspect]
     Active Substance: ONDANSETRON
     Indication: Antiemetic supportive care
     Dosage: 8 MILLIGRAM, BID
     Route: 042
     Dates: start: 20201108, end: 20201124
  17. ONDANSETRON [Suspect]
     Active Substance: ONDANSETRON
     Dosage: 8 MILLIGRAM, BID
     Route: 042
     Dates: start: 20210310, end: 20210316
  18. ONDANSETRON [Suspect]
     Active Substance: ONDANSETRON
     Dosage: UNK MONTHLY
     Route: 042
     Dates: start: 20200825, end: 20210618
  19. ONDANSETRON [Suspect]
     Active Substance: ONDANSETRON
     Dosage: 8 MILLIGRAM, BID
     Route: 042
     Dates: start: 20210617, end: 20210617
  20. ONDANSETRON [Suspect]
     Active Substance: ONDANSETRON
     Dosage: 8 MILLIGRAM, BID
     Route: 042
     Dates: start: 20201216, end: 20201223
  21. ONDANSETRON [Suspect]
     Active Substance: ONDANSETRON
     Dosage: 8 MILLIGRAM, BID
     Route: 042
     Dates: start: 20210210, end: 20210216
  22. ONDANSETRON [Suspect]
     Active Substance: ONDANSETRON
     Dosage: 8 MILLIGRAM, BID
     Route: 042
     Dates: start: 20210408, end: 20210413
  23. ONDANSETRON [Suspect]
     Active Substance: ONDANSETRON
     Dosage: 8 MILLIGRAM, BID
     Route: 042
     Dates: start: 20210113, end: 20210119
  24. ONDANSETRON [Suspect]
     Active Substance: ONDANSETRON
     Dosage: 8 MILLIGRAM, BID
     Route: 042
     Dates: start: 20201021, end: 20201027
  25. ONDANSETRON [Suspect]
     Active Substance: ONDANSETRON
     Dosage: 8 MILLIGRAM, BID
     Route: 042
     Dates: start: 20210505, end: 20210511
  26. ONDANSETRON [Suspect]
     Active Substance: ONDANSETRON
     Dosage: 8 MILLIGRAM (IN MORNING)
     Route: 042
     Dates: start: 20210618, end: 20210618
  27. IVABRADINE [Suspect]
     Active Substance: IVABRADINE
     Indication: Angina pectoris
     Dosage: 10 MILLIGRAM, QD
     Route: 048
  28. BROMAZEPAM [Suspect]
     Active Substance: BROMAZEPAM
     Indication: Anxiety
     Dosage: 6 MILLIGRAM, QD
     Route: 048
  29. LIDOCAINE HYDROCHLORIDE [Concomitant]
     Active Substance: LIDOCAINE HYDROCHLORIDE
     Indication: Product used for unknown indication
     Dosage: UNK
     Route: 065
  30. PANTOPRAZOLE [Concomitant]
     Active Substance: PANTOPRAZOLE
     Indication: Product used for unknown indication
     Dosage: UNK
     Route: 065
  31. CYTARABINE [Concomitant]
     Active Substance: CYTARABINE
     Indication: Product used for unknown indication
     Dosage: UNK
     Route: 065
  32. VALACYCLOVIR HYDROCHLORIDE [Concomitant]
     Active Substance: VALACYCLOVIR HYDROCHLORIDE
     Indication: Product used for unknown indication
     Dosage: UNK
     Route: 065
     Dates: start: 20200817

REACTIONS (5)
  - Bronchospasm [Recovered/Resolved]
  - Agranulocytosis [Unknown]
  - Urticaria [Not Recovered/Not Resolved]
  - Angioedema [Recovered/Resolved]
  - Rash [Unknown]

NARRATIVE: CASE EVENT DATE: 20221005
